FAERS Safety Report 10215786 (Version 2)
Quarter: 2014Q2

REPORT INFORMATION
  Report Type: Report from Study
  Country: MX (occurrence: MX)
  Receive Date: 20140604
  Receipt Date: 20140604
  Transmission Date: 20141212
  Serious: Yes (Hospitalization, Other)
  Sender: FDA-Public Use
  Company Number: PHHY2012MX060667

PATIENT
  Age: 80 Year
  Sex: Female

DRUGS (13)
  1. EXELON PATCH [Suspect]
     Indication: DEMENTIA ALZHEIMER^S TYPE
     Dosage: 9.5 MG, DAILY (PATCH 10 CM2)
     Route: 062
     Dates: start: 201205
  2. EXELON PATCH [Suspect]
     Indication: MEMORY IMPAIRMENT
  3. PROPANOLOL [Concomitant]
     Indication: HYPERTENSION
     Dosage: 1.5 DF, UNK
  4. PROPANOLOL [Concomitant]
     Dosage: UNK UKN, PRN (OCCASIONALLY)
  5. ANGIOTROFIN (DILTIAZEM) [Concomitant]
     Indication: ANGINA PECTORIS
     Dosage: 1 DF, DAILY
  6. ASPIRIN [Concomitant]
     Indication: PERIPHERAL VASCULAR DISORDER
     Dosage: 1 DF, DAILY
  7. RANITIDINE [Concomitant]
     Dosage: 1 DF, DAILY
  8. FOLIC ACID [Concomitant]
     Dosage: 1 DF, DAILY
  9. PHARMATON [Concomitant]
     Indication: HYPOVITAMINOSIS
     Dosage: 1 DF, DAILY
     Dates: start: 201305
  10. PANTOPRAZOLE [Concomitant]
     Indication: GASTRITIS
     Dosage: 1 DF, DAILY
  11. PROVAX [Concomitant]
     Dosage: 2 UKN, DAILY
  12. ASPIRIN PROTECT [Concomitant]
     Dosage: 1 UKN, DAILY
  13. BENEDORM [Concomitant]
     Dosage: 1 UKN, DAILY

REACTIONS (31)
  - Fall [Recovering/Resolving]
  - Pulmonary interstitial emphysema syndrome [Not Recovered/Not Resolved]
  - Cardiovascular disorder [Not Recovered/Not Resolved]
  - Hiatus hernia [Not Recovered/Not Resolved]
  - Joint injury [Not Recovered/Not Resolved]
  - Haemorrhage [Not Recovered/Not Resolved]
  - Peripheral vascular disorder [Not Recovered/Not Resolved]
  - Cerebrovascular accident [Recovered/Resolved]
  - Blood pressure increased [Unknown]
  - Tachycardia [Not Recovered/Not Resolved]
  - Anaemia [Not Recovered/Not Resolved]
  - Eye disorder [Not Recovered/Not Resolved]
  - Visual impairment [Not Recovered/Not Resolved]
  - Vision blurred [Not Recovered/Not Resolved]
  - Cataract [Not Recovered/Not Resolved]
  - Oesophagitis [Not Recovered/Not Resolved]
  - Iatrogenic injury [Not Recovered/Not Resolved]
  - Cough [Not Recovered/Not Resolved]
  - Burning sensation [Not Recovered/Not Resolved]
  - Heart rate increased [Recovered/Resolved]
  - Arthralgia [Recovered/Resolved]
  - Respiratory disorder [Recovered/Resolved]
  - Rhinorrhoea [Recovered/Resolved]
  - Feeling abnormal [Not Recovered/Not Resolved]
  - Gastritis [Not Recovered/Not Resolved]
  - Application site erythema [Not Recovered/Not Resolved]
  - Weight decreased [Not Recovered/Not Resolved]
  - Memory impairment [Not Recovered/Not Resolved]
  - Insomnia [Not Recovered/Not Resolved]
  - Fatigue [Not Recovered/Not Resolved]
  - Dizziness [Not Recovered/Not Resolved]
